FAERS Safety Report 4438632-7 (Version None)
Quarter: 2004Q3

REPORT INFORMATION
  Report Type: 
  Country: None (occurrence: None)
  Receive Date: 20040728
  Receipt Date: 20040301
  Transmission Date: 20050211
  Serious: No
  Sender: FDA-Public Use
  Company Number: USA040360609

PATIENT
  Age: 44 Year
  Sex: Female

DRUGS (4)
  1. STRATTERA [Suspect]
     Indication: OBSESSIVE-COMPULSIVE DISORDER
     Dosage: 80 MG DAY
     Dates: start: 20040201
  2. WELLBUTRIN [Concomitant]
  3. SERZONE [Concomitant]
  4. KLONOPIN [Concomitant]

REACTIONS (3)
  - DISTURBANCE IN ATTENTION [None]
  - FALL [None]
  - SKIN LACERATION [None]
